FAERS Safety Report 7003383-1 (Version None)
Quarter: 2010Q3

REPORT INFORMATION
  Report Type: 
  Country: None (occurrence: None)
  Receive Date: 20100920
  Receipt Date: 20100908
  Transmission Date: 20110219
  Serious: Yes (Other)
  Sender: FDA-Public Use
  Company Number: US-PFIZER INC-2010114136

PATIENT

DRUGS (2)
  1. GABAPENTIN [Suspect]
  2. GABAPENTIN [Suspect]

REACTIONS (4)
  - INSOMNIA [None]
  - MUSCLE SPASMS [None]
  - PAIN IN EXTREMITY [None]
  - RESTLESSNESS [None]
